FAERS Safety Report 7027154-5 (Version None)
Quarter: 2010Q4

REPORT INFORMATION
  Report Type: 
  Country: None (occurrence: None)
  Receive Date: 20101004
  Receipt Date: 20100930
  Transmission Date: 20110411
  Serious: Yes (Other)
  Sender: FDA-Public Use
  Company Number: US-BRISTOL-MYERS SQUIBB COMPANY-15291545

PATIENT
  Age: 63 Year
  Sex: Female

DRUGS (6)
  1. ORENCIA [Suspect]
     Indication: RHEUMATOID ARTHRITIS
     Dosage: RESTARTED:11AUG10
     Route: 042
     Dates: start: 20091001, end: 20100831
  2. DIOVAN [Suspect]
  3. PREDNISONE [Concomitant]
  4. METHOTREXATE [Concomitant]
  5. PLAQUENIL [Concomitant]
  6. FOLIC ACID [Concomitant]

REACTIONS (3)
  - ANGIOEDEMA [None]
  - BREAKTHROUGH PAIN [None]
  - C-REACTIVE PROTEIN INCREASED [None]
